FAERS Safety Report 9921948 (Version 1)
Quarter: 2014Q1

REPORT INFORMATION
  Report Type: Spontaneous
  Country: US (occurrence: None)
  Receive Date: 20140221
  Receipt Date: 20140221
  Transmission Date: 20141002
  Serious: Yes (Life-Threatening, Hospitalization)
  Sender: FDA-Public Use
  Company Number: None

PATIENT
  Age: 60 Year
  Sex: Male
  Weight: 45.95 kg

DRUGS (1)
  1. EPIPEN [Suspect]
     Indication: ANAPHYLACTIC REACTION
     Dates: start: 20140113

REACTIONS (7)
  - Apnoea [None]
  - Pulse absent [None]
  - Underdose [None]
  - Drug administration monitoring procedure not performed [None]
  - Inappropriate schedule of drug administration [None]
  - Loss of consciousness [None]
  - Dyspnoea [None]
